FAERS Safety Report 9335990 (Version 1)
Quarter: 2013Q2

REPORT INFORMATION
  Report Type: Spontaneous
  Country: GR (occurrence: GR)
  Receive Date: 20130606
  Receipt Date: 20130606
  Transmission Date: 20140414
  Serious: Yes (Other)
  Sender: FDA-Public Use
  Company Number: GR-ROCHE-1233078

PATIENT
  Age: 60 Year
  Sex: Female

DRUGS (4)
  1. AVASTIN [Suspect]
     Indication: ENDOMETRIAL CANCER
     Route: 042
  2. AVASTIN [Suspect]
     Indication: HEPATIC CANCER
  3. XELODA [Suspect]
     Indication: ENDOMETRIAL CANCER
     Route: 065
  4. XELODA [Suspect]
     Indication: HEPATIC CANCER

REACTIONS (6)
  - Stomatitis [Recovered/Resolved]
  - Diarrhoea [Recovered/Resolved]
  - Malaise [Not Recovered/Not Resolved]
  - Hypotonia [Not Recovered/Not Resolved]
  - Local swelling [Not Recovered/Not Resolved]
  - Metastasis [Unknown]
